FAERS Safety Report 8994726 (Version 2)
Quarter: 2013Q1

REPORT INFORMATION
  Report Type: Spontaneous
  Country: US (occurrence: None)
  Receive Date: 20121221
  Receipt Date: 20130213
  Transmission Date: 20140127
  Serious: Yes (Death)
  Sender: FDA-Public Use
  Company Number: 2012-676

PATIENT
  Age: 37 Year
  Sex: Male

DRUGS (1)
  1. PRIALT [Suspect]
     Indication: INADEQUATE ANALGESIA
     Dosage: 0.15 MCG, ONCE/HOUR, INTRATHECAL
     Route: 037
     Dates: start: 20120904

REACTIONS (7)
  - Accidental death [None]
  - Completed suicide [None]
  - Mood altered [None]
  - Fall [None]
  - Drowning [None]
  - Confusional state [None]
  - Suicidal ideation [None]
